FAERS Safety Report 10444793 (Version 2)
Quarter: 2014Q3

REPORT INFORMATION
  Report Type: Report from Study
  Country: CA (occurrence: CA)
  Receive Date: 20140910
  Receipt Date: 20140910
  Transmission Date: 20150326
  Serious: Yes (Hospitalization)
  Sender: FDA-Public Use
  Company Number: CA-ABBVIE-13P-028-1178572-00

PATIENT
  Sex: Female
  Weight: 90 kg

DRUGS (7)
  1. IMURAN [Concomitant]
     Active Substance: AZATHIOPRINE
     Indication: PRODUCT USED FOR UNKNOWN INDICATION
  2. METHOTREXATE [Concomitant]
     Active Substance: METHOTREXATE
     Indication: PRODUCT USED FOR UNKNOWN INDICATION
  3. ALESSE 28 [Concomitant]
     Active Substance: ETHINYL ESTRADIOL\LEVONORGESTREL
     Indication: PRODUCT USED FOR UNKNOWN INDICATION
  4. CALCIUM [Concomitant]
     Active Substance: CALCIUM
     Indication: PRODUCT USED FOR UNKNOWN INDICATION
  5. HUMIRA [Suspect]
     Active Substance: ADALIMUMAB
     Indication: CROHN^S DISEASE
     Route: 058
     Dates: start: 20130704
  6. HUMIRA [Suspect]
     Active Substance: ADALIMUMAB
     Route: 058
  7. STEROIDS( UNSPECIFIED NAME) [Concomitant]
     Indication: PRODUCT USED FOR UNKNOWN INDICATION
     Dosage: DOSAGE DECREASE FROM 40 MG TO 0 MG
     Dates: start: 20131018, end: 201312

REACTIONS (12)
  - Intestinal obstruction [Recovering/Resolving]
  - Malabsorption [Not Recovered/Not Resolved]
  - Inflammation [Not Recovered/Not Resolved]
  - Intestinal mass [Unknown]
  - Malnutrition [Not Recovered/Not Resolved]
  - Intestinal mucosal hypertrophy [Unknown]
  - Investigation [Not Recovered/Not Resolved]
  - Drug ineffective [Recovering/Resolving]
  - Fatigue [Recovering/Resolving]
  - Decreased appetite [Recovering/Resolving]
  - Abdominal pain [Recovering/Resolving]
  - Drug effect incomplete [Not Recovered/Not Resolved]

NARRATIVE: CASE EVENT DATE: 2013
